FAERS Safety Report 6335221-4 (Version None)
Quarter: 2009Q3

REPORT INFORMATION
  Report Type: 
  Country: None (occurrence: None)
  Receive Date: 20090828
  Receipt Date: 20090828
  Transmission Date: 20100115
  Serious: Yes (Life-Threatening)
  Sender: FDA-Public Use
  Company Number: None

PATIENT
  Sex: Female
  Weight: 66.2252 kg

DRUGS (1)
  1. AMBIEN CR [Suspect]
     Indication: INSOMNIA
     Dosage: 12.5 MG 1 @ BEDTIME ORAL APPROX 12 YEARS
     Route: 048

REACTIONS (8)
  - AMNESIA [None]
  - ENURESIS [None]
  - FEELING ABNORMAL [None]
  - LOSS OF CONSCIOUSNESS [None]
  - MIDDLE INSOMNIA [None]
  - PERSONALITY CHANGE [None]
  - SOMNAMBULISM [None]
  - WEIGHT INCREASED [None]
